FAERS Safety Report 7727057-4 (Version None)
Quarter: 2011Q3

REPORT INFORMATION
  Report Type: 
  Country: None (occurrence: None)
  Receive Date: 20110902
  Receipt Date: 20110825
  Transmission Date: 20111222
  Serious: Yes (Hospitalization)
  Sender: FDA-Public Use
  Company Number: DE-BRISTOL-MYERS SQUIBB COMPANY-16023830

PATIENT
  Age: 52 Year
  Sex: Female

DRUGS (3)
  1. CISPLATIN [Concomitant]
  2. FLUOROURACIL [Concomitant]
  3. ERBITUX [Suspect]
     Indication: COLORECTAL CANCER
     Route: 042

REACTIONS (1)
  - TOXIC ENCEPHALOPATHY [None]
